FAERS Safety Report 9893922 (Version 3)
Quarter: 2014Q2

REPORT INFORMATION
  Report Type: Spontaneous
  Country: ES (occurrence: ES)
  Receive Date: 20140213
  Receipt Date: 20140606
  Transmission Date: 20141212
  Serious: Yes (Death)
  Sender: FDA-Public Use
  Company Number: ES-ROCHE-1347967

PATIENT
  Age: 72 Year
  Sex: Female

DRUGS (2)
  1. TOCILIZUMAB [Suspect]
     Indication: RHEUMATOID ARTHRITIS
     Dosage: CONCENTRATED SOLUTION FOR PERFUSION
     Route: 042
     Dates: start: 20110921, end: 20140117
  2. ARAVA [Suspect]
     Indication: PRODUCT USED FOR UNKNOWN INDICATION
     Dosage: FILM COATED TABLET
     Route: 048
     Dates: start: 20131001, end: 20140117

REACTIONS (1)
  - Cerebral haemorrhage [Fatal]
